FAERS Safety Report 14250067 (Version 1)
Quarter: 2017Q4

REPORT INFORMATION
  Report Type: Spontaneous
  Country: US (occurrence: None)
  Receive Date: 20171205
  Receipt Date: 20171205
  Transmission Date: 20180321
  Serious: Yes (Hospitalization)
  Sender: FDA-Public Use
  Company Number: None

PATIENT
  Age: 84 Year
  Sex: Male

DRUGS (1)
  1. WARFARIN [Suspect]
     Active Substance: WARFARIN
     Indication: ATRIAL FIBRILLATION
     Route: 048
     Dates: start: 20140826, end: 20171030

REACTIONS (6)
  - Upper gastrointestinal haemorrhage [None]
  - Abdominal distension [None]
  - Ascites [None]
  - Jaundice [None]
  - International normalised ratio increased [None]
  - Hepatic cirrhosis [None]

NARRATIVE: CASE EVENT DATE: 20171024
